FAERS Safety Report 4842621-8 (Version None)
Quarter: 2005Q4

REPORT INFORMATION
  Report Type: 
  Country: None (occurrence: None)
  Receive Date: 20051201
  Receipt Date: 20051128
  Transmission Date: 20060501
  Serious: Yes (Other)
  Sender: FDA-Public Use
  Company Number: GB-GLAXOSMITHKLINE-B0401938A

PATIENT
  Age: 15 Year
  Sex: Female

DRUGS (2)
  1. LAMICTAL [Suspect]
     Indication: DRUG USE FOR UNKNOWN INDICATION
     Route: 048
     Dates: start: 20051024
  2. CARBOMEZABINE [Concomitant]

REACTIONS (5)
  - AMNESIA [None]
  - BLISTER [None]
  - CONVULSION [None]
  - DIARRHOEA [None]
  - SPEECH DISORDER [None]
